FAERS Safety Report 6110944-0 (Version None)
Quarter: 2009Q1

REPORT INFORMATION
  Report Type: 
  Country: None (occurrence: None)
  Receive Date: 20090311
  Receipt Date: 20090304
  Transmission Date: 20090719
  Serious: Yes (Death, Hospitalization)
  Sender: FDA-Public Use
  Company Number: GR-ABBOTT-08P-066-0483871-00

PATIENT
  Age: 81 Year
  Sex: Male
  Weight: 71 kg

DRUGS (13)
  1. ZEMPLAR [Suspect]
     Indication: HYPERPARATHYROIDISM SECONDARY
     Route: 042
     Dates: start: 20080611, end: 20080731
  2. ARANESP [Concomitant]
     Indication: DRUG USE FOR UNKNOWN INDICATION
  3. COSMOFER [Concomitant]
     Indication: DRUG USE FOR UNKNOWN INDICATION
  4. SUPERAMIN [Concomitant]
     Indication: DRUG USE FOR UNKNOWN INDICATION
  5. FILICINE [Concomitant]
     Indication: DRUG USE FOR UNKNOWN INDICATION
  6. NEUROBION [Concomitant]
     Indication: DRUG USE FOR UNKNOWN INDICATION
  7. EVATON [Concomitant]
     Indication: DRUG USE FOR UNKNOWN INDICATION
  8. LOFTYL [Concomitant]
     Indication: DRUG USE FOR UNKNOWN INDICATION
  9. RENAGEL [Concomitant]
     Indication: DRUG USE FOR UNKNOWN INDICATION
  10. TITRALAC [Concomitant]
     Indication: DRUG USE FOR UNKNOWN INDICATION
  11. PROTAPHAN [Concomitant]
     Indication: DRUG USE FOR UNKNOWN INDICATION
  12. ISCOVER [Concomitant]
     Indication: DRUG USE FOR UNKNOWN INDICATION
  13. TARONTAL [Concomitant]
     Indication: DRUG USE FOR UNKNOWN INDICATION

REACTIONS (5)
  - ANOREXIA [None]
  - BLADDER CANCER [None]
  - CARDIO-RESPIRATORY ARREST [None]
  - DYSPNOEA [None]
  - FATIGUE [None]
